FAERS Safety Report 18972062 (Version 1)
Quarter: 2021Q1

REPORT INFORMATION
  Report Type: Spontaneous
  Country: ES (occurrence: ES)
  Receive Date: 20210305
  Receipt Date: 20210305
  Transmission Date: 20210420
  Serious: Yes (Other)
  Sender: FDA-Public Use
  Company Number: ES-AMGEN-ESPSP2021026178

PATIENT
  Age: 72 Year
  Sex: Female

DRUGS (7)
  1. CALCIFEDIOL [Concomitant]
     Active Substance: CALCIFEDIOL
  2. ESOMEPRAZOL [ESOMEPRAZOLE] [Concomitant]
     Active Substance: ESOMEPRAZOLE
  3. RAMIPRIL. [Concomitant]
     Active Substance: RAMIPRIL
  4. ATORVASTATINA [ATORVASTATIN] [Concomitant]
     Active Substance: ATORVASTATIN
  5. CALCIO [CALCIUM] [Concomitant]
     Active Substance: CALCIUM
  6. PROLIA [Suspect]
     Active Substance: DENOSUMAB
     Indication: OSTEOPOROSIS
     Dosage: 60 MILLIGRAM, Q6MO
     Route: 058
     Dates: start: 2018, end: 202002
  7. STILNOX [Concomitant]
     Active Substance: ZOLPIDEM TARTRATE

REACTIONS (6)
  - Intervertebral disc degeneration [Unknown]
  - Spinal fracture [Not Recovered/Not Resolved]
  - Perineurial cyst [Unknown]
  - Spinal osteoarthritis [Unknown]
  - Lordosis [Unknown]
  - Spinal stenosis [Unknown]

NARRATIVE: CASE EVENT DATE: 20200725
